FAERS Safety Report 7898406-1 (Version None)
Quarter: 2011Q4

REPORT INFORMATION
  Report Type: 
  Country: None (occurrence: None)
  Receive Date: 20111107
  Receipt Date: 20111102
  Transmission Date: 20120403
  Serious: Yes (Death, Other)
  Sender: FDA-Public Use
  Company Number: US-BAXTER-2009BH017875

PATIENT
  Sex: Male
  Weight: 79 kg

DRUGS (54)
  1. HEPARIN SODIUM INJECTION [Suspect]
     Route: 040
     Dates: start: 20071114
  2. NORVASC [Concomitant]
     Indication: PRODUCT USED FOR UNKNOWN INDICATION
     Route: 065
  3. HEPARIN SODIUM 5,000 UNITS IN DEXTROSE 5% [Suspect]
     Route: 042
     Dates: start: 20071218, end: 20071220
  4. HEPARIN SODIUM INJECTION [Suspect]
     Route: 042
     Dates: start: 20080101, end: 20080106
  5. HEPARIN SODIUM INJECTION [Suspect]
     Route: 042
     Dates: start: 20071229, end: 20071230
  6. ATORVASTATIN [Concomitant]
     Indication: PRODUCT USED FOR UNKNOWN INDICATION
     Route: 065
  7. PERCOCET [Concomitant]
     Indication: PRODUCT USED FOR UNKNOWN INDICATION
     Route: 065
  8. HYDROCHLOROTHIAZIDE [Concomitant]
     Indication: PRODUCT USED FOR UNKNOWN INDICATION
     Route: 065
  9. HEPARIN SODIUM 5,000 UNITS IN DEXTROSE 5% [Suspect]
     Indication: ANTICOAGULANT THERAPY
     Route: 042
     Dates: start: 20071218, end: 20071220
  10. HEPARIN SODIUM 5,000 UNITS IN DEXTROSE 5% [Suspect]
     Route: 065
     Dates: start: 20071101
  11. HEPARIN SODIUM INJECTION [Suspect]
     Indication: CATHETERISATION CARDIAC
     Route: 042
     Dates: start: 20080110, end: 20080122
  12. HEPARIN SODIUM INJECTION [Suspect]
     Route: 042
     Dates: start: 20071229, end: 20071230
  13. HEPARIN SODIUM INJECTION [Suspect]
     Route: 065
     Dates: start: 20071118, end: 20071118
  14. HEPARIN SODIUM INJECTION [Suspect]
     Route: 042
     Dates: start: 20071223, end: 20071226
  15. HEPARIN SODIUM INJECTION [Suspect]
     Route: 042
     Dates: start: 20071116, end: 20071116
  16. HEPARIN SODIUM INJECTION [Suspect]
     Route: 040
     Dates: start: 20071114
  17. HEPARIN SODIUM INJECTION [Suspect]
     Route: 040
     Dates: start: 20071114
  18. HEPARIN SODIUM INJECTION [Suspect]
     Route: 042
     Dates: start: 20071121, end: 20071208
  19. HEPARIN SODIUM INJECTION [Suspect]
     Route: 042
     Dates: start: 20071121, end: 20071208
  20. HEPARIN SODIUM INJECTION [Suspect]
     Route: 042
     Dates: start: 20080101, end: 20080106
  21. DOXAZOSIN MESYLATE [Concomitant]
     Indication: PRODUCT USED FOR UNKNOWN INDICATION
     Route: 065
  22. HEPARIN SODIUM INJECTION [Suspect]
     Route: 042
     Dates: start: 20071223, end: 20071226
  23. HEPARIN SODIUM INJECTION [Suspect]
     Route: 042
     Dates: start: 20071116, end: 20071116
  24. LOVENOX [Concomitant]
     Indication: PRODUCT USED FOR UNKNOWN INDICATION
     Route: 065
  25. HEPARIN SODIUM 5,000 UNITS IN DEXTROSE 5% [Suspect]
     Indication: PRODUCT USED FOR UNKNOWN INDICATION
     Route: 042
     Dates: end: 20080123
  26. HEPARIN SODIUM INJECTION [Suspect]
     Route: 065
     Dates: start: 20071118, end: 20071118
  27. HEPARIN SODIUM INJECTION [Suspect]
     Route: 042
     Dates: start: 20071116, end: 20071116
  28. HEPARIN SODIUM INJECTION [Suspect]
     Route: 065
     Dates: start: 20071118, end: 20071118
  29. CLOPIDOGREL [Concomitant]
     Indication: PRODUCT USED FOR UNKNOWN INDICATION
     Route: 065
  30. LOPRESSOR [Concomitant]
     Indication: PRODUCT USED FOR UNKNOWN INDICATION
     Route: 065
  31. ALBUTEROL [Concomitant]
     Indication: PRODUCT USED FOR UNKNOWN INDICATION
     Route: 065
  32. HEPARIN SODIUM INJECTION [Suspect]
     Route: 042
     Dates: start: 20080101, end: 20080106
  33. HEPARIN SODIUM INJECTION [Suspect]
     Route: 042
     Dates: start: 20071114, end: 20071114
  34. HEPARIN SODIUM INJECTION [Suspect]
     Route: 042
     Dates: start: 20071115, end: 20071116
  35. HEPARIN SODIUM INJECTION [Suspect]
     Route: 042
     Dates: start: 20071223, end: 20071226
  36. HEPARIN SODIUM INJECTION [Suspect]
     Route: 042
     Dates: start: 20071210, end: 20071217
  37. PEPCID [Concomitant]
     Indication: PRODUCT USED FOR UNKNOWN INDICATION
     Route: 065
  38. ZOFRAN [Concomitant]
     Indication: PRODUCT USED FOR UNKNOWN INDICATION
     Route: 065
  39. COMBIVENT                               /JOR/ [Concomitant]
     Indication: PRODUCT USED FOR UNKNOWN INDICATION
     Route: 055
  40. HEPARIN SODIUM 5,000 UNITS IN DEXTROSE 5% [Suspect]
     Route: 042
     Dates: end: 20080123
  41. HEPARIN SODIUM INJECTION [Suspect]
     Indication: STENT PLACEMENT
     Route: 042
     Dates: start: 20080110, end: 20080122
  42. HEPARIN SODIUM INJECTION [Suspect]
     Route: 042
     Dates: start: 20071210, end: 20071217
  43. HEPARIN SODIUM INJECTION [Suspect]
     Route: 042
     Dates: start: 20071210, end: 20071217
  44. HEPARIN SODIUM INJECTION [Suspect]
     Route: 042
     Dates: start: 20071115, end: 20071116
  45. HEPARIN SODIUM INJECTION [Suspect]
     Indication: PRODUCT USED FOR UNKNOWN INDICATION
     Route: 042
     Dates: start: 20071114, end: 20071114
  46. HEPARIN SODIUM INJECTION [Suspect]
     Route: 042
     Dates: start: 20071121, end: 20071208
  47. HEPARIN SODIUM INJECTION [Suspect]
     Route: 042
     Dates: start: 20080110, end: 20080122
  48. BENAZEPRIL HYDROCHLORIDE [Concomitant]
     Indication: PRODUCT USED FOR UNKNOWN INDICATION
     Route: 065
  49. HEPARIN SODIUM INJECTION [Suspect]
     Route: 042
     Dates: start: 20071114, end: 20071114
  50. HEPARIN SODIUM INJECTION [Suspect]
     Route: 040
     Dates: start: 20071114
  51. HEPARIN SODIUM INJECTION [Suspect]
     Route: 042
     Dates: start: 20071229, end: 20071230
  52. ASPIRIN [Concomitant]
     Indication: PRODUCT USED FOR UNKNOWN INDICATION
     Route: 065
  53. COUMADIN [Concomitant]
     Indication: PRODUCT USED FOR UNKNOWN INDICATION
     Route: 065
  54. DIGOXIN [Concomitant]
     Indication: PRODUCT USED FOR UNKNOWN INDICATION
     Route: 065

REACTIONS (53)
  - ARTERIAL RUPTURE [None]
  - PLEURAL EFFUSION [None]
  - PULMONARY CONGESTION [None]
  - HAEMATEMESIS [None]
  - ANXIETY [None]
  - HALLUCINATION [None]
  - TACHYCARDIA [None]
  - ANAEMIA [None]
  - RETROPERITONEAL HAEMATOMA [None]
  - PERIPHERAL VASCULAR DISORDER [None]
  - PNEUMONIA [None]
  - IMPLANT SITE EXTRAVASATION [None]
  - RETROPERITONEAL HAEMORRHAGE [None]
  - SEPTIC SHOCK [None]
  - RENAL TUBULAR NECROSIS [None]
  - RASH [None]
  - ATRIAL FIBRILLATION [None]
  - UNRESPONSIVE TO STIMULI [None]
  - BLISTER [None]
  - ABDOMINAL DISTENSION [None]
  - MENTAL STATUS CHANGES [None]
  - CLOSTRIDIUM DIFFICILE COLITIS [None]
  - RESPIRATORY FAILURE [None]
  - RECTAL HAEMORRHAGE [None]
  - INFECTION [None]
  - FLANK PAIN [None]
  - AORTIC ANEURYSM [None]
  - INCONTINENCE [None]
  - HYPOTENSION [None]
  - PYREXIA [None]
  - VOMITING [None]
  - VENTRICULAR TACHYCARDIA [None]
  - ISCHAEMIC HEPATITIS [None]
  - HYPERKALAEMIA [None]
  - BLOOD OSMOLARITY DECREASED [None]
  - MULTI-ORGAN FAILURE [None]
  - GASTRITIS HAEMORRHAGIC [None]
  - SHOCK [None]
  - RENAL MASS [None]
  - HYPOKALAEMIA [None]
  - DEHYDRATION [None]
  - OEDEMA [None]
  - PNEUMONIA ASPIRATION [None]
  - SEPSIS [None]
  - RENAL FAILURE ACUTE [None]
  - HYPOXIA [None]
  - ABDOMINAL PAIN LOWER [None]
  - LETHARGY [None]
  - LEUKOCYTOSIS [None]
  - NAUSEA [None]
  - TOXIC ENCEPHALOPATHY [None]
  - GASTROINTESTINAL HAEMORRHAGE [None]
  - SKIN DISORDER [None]
